FAERS Safety Report 7802316-5 (Version None)
Quarter: 2011Q4

REPORT INFORMATION
  Report Type: 
  Country: None (occurrence: None)
  Receive Date: 20111007
  Receipt Date: 20110913
  Transmission Date: 20120403
  Serious: Yes (Hospitalization)
  Sender: FDA-Public Use
  Company Number: GB-JNJFOC-20110906950

PATIENT
  Age: 54 Year
  Sex: Female
  Weight: 78 kg

DRUGS (7)
  1. SIMVASTATIN [Concomitant]
     Route: 048
  2. VENLAFAXINE [Concomitant]
     Route: 048
  3. ACETAMINOPHEN [Suspect]
     Route: 048
  4. TRAZODONE HYDROCHLORIDE [Concomitant]
     Route: 048
  5. LORAZEPAM [Concomitant]
     Route: 048
  6. METFORMIN HYDROCHLORIDE [Concomitant]
     Route: 048
  7. ACETAMINOPHEN [Suspect]
     Indication: PRODUCT USED FOR UNKNOWN INDICATION
     Route: 048

REACTIONS (3)
  - LIVER DISORDER [None]
  - INTENTIONAL OVERDOSE [None]
  - RENAL IMPAIRMENT [None]
